FAERS Safety Report 5575005-8 (Version None)
Quarter: 2007Q4

REPORT INFORMATION
  Report Type: 
  Country: None (occurrence: None)
  Receive Date: 20071227
  Receipt Date: 20071217
  Transmission Date: 20080405
  Serious: Yes (Other)
  Sender: FDA-Public Use
  Company Number: PT-PFIZER INC-2007107328

PATIENT
  Sex: Female

DRUGS (2)
  1. CHANTIX [Suspect]
     Indication: SMOKING CESSATION THERAPY
  2. FLUVASTATIN [Concomitant]
     Route: 048

REACTIONS (8)
  - ANAEMIA [None]
  - ANOREXIA [None]
  - BLOOD ALBUMIN INCREASED [None]
  - BLOOD CREATININE INCREASED [None]
  - PALLOR [None]
  - RED BLOOD CELL SEDIMENTATION RATE INCREASED [None]
  - RENAL FAILURE [None]
  - WEIGHT DECREASED [None]
